FAERS Safety Report 7316332-3 (Version None)
Quarter: 2011Q1

REPORT INFORMATION
  Report Type: 
  Country: None (occurrence: None)
  Receive Date: 20110225
  Receipt Date: 20110217
  Transmission Date: 20110831
  Serious: Yes (Hospitalization, Other)
  Sender: FDA-Public Use
  Company Number: US-US-EMD SERONO, INC.-236755J08USA

PATIENT
  Sex: Male
  Weight: 65 kg

DRUGS (7)
  1. REBIF [Suspect]
     Indication: MULTIPLE SCLEROSIS
     Route: 058
     Dates: start: 20080403, end: 20100101
  2. TRAZODONE HCL [Concomitant]
     Indication: INSOMNIA
     Route: 065
     Dates: start: 20050101
  3. KLONOPIN [Concomitant]
     Indication: DEPRESSION
     Route: 065
  4. NEURONTIN [Concomitant]
     Indication: PAIN IN EXTREMITY
     Route: 065
  5. CYMBALTA [Concomitant]
     Indication: DEPRESSION
     Route: 065
  6. UNSPECIFIED ANTIDEPRESSANTS [Concomitant]
     Indication: DEPRESSION
  7. DURAGESIC-100 [Concomitant]
     Indication: PAIN
     Route: 065
     Dates: start: 20060101

REACTIONS (3)
  - NEURILEMMOMA [None]
  - DEPRESSION [None]
  - MULTIPLE SCLEROSIS RELAPSE [None]
